FAERS Safety Report 5403434-1 (Version None)
Quarter: 2007Q3

REPORT INFORMATION
  Report Type: 
  Country: None (occurrence: None)
  Receive Date: 20070730
  Receipt Date: 20070716
  Transmission Date: 20080115
  Serious: Yes (Death, Hospitalization)
  Sender: FDA-Public Use
  Company Number: 2007EU001621

PATIENT
  Age: 49 Year
  Sex: Female

DRUGS (6)
  1. PROGRAF [Suspect]
     Indication: LIVER TRANSPLANT
     Dosage: ORAL
     Route: 048
     Dates: start: 20070221
  2. CANCIDAS [Concomitant]
  3. FLUCONAZOLE [Concomitant]
  4. CLAVENTIN (TICARCILLIN DISODIUM, CLAVULANATE POTASSIUM) [Concomitant]
  5. TIENAM (IMIPENEM, CILASTATIN SODIUM) [Concomitant]
  6. MORPHINE SULFATE INJ [Concomitant]

REACTIONS (9)
  - ANAEMIA [None]
  - CHOLANGITIS [None]
  - GENERAL PHYSICAL HEALTH DETERIORATION [None]
  - HEPATIC FAILURE [None]
  - METABOLIC ACIDOSIS [None]
  - MULTI-ORGAN FAILURE [None]
  - POST PROCEDURAL COMPLICATION [None]
  - RENAL FAILURE ACUTE [None]
  - SEPSIS [None]
